FAERS Safety Report 11412970 (Version 2)
Quarter: 2015Q3

REPORT INFORMATION
  Report Type: Spontaneous
  Country: US (occurrence: US)
  Receive Date: 20150821
  Receipt Date: 20150903
  Transmission Date: 20151125
  Serious: No
  Sender: FDA-Public Use
  Company Number: US-ELI_LILLY_AND_COMPANY-US201205007957

PATIENT
  Age: 36 Year
  Weight: 62.59 kg

DRUGS (14)
  1. HUMALOG [Suspect]
     Active Substance: INSULIN LISPRO
     Dosage: 3 TO 5 U, WITH DINNER
     Dates: start: 2004
  2. HUMALOG [Suspect]
     Active Substance: INSULIN LISPRO
     Dosage: 10 U, EACH MORNING
     Dates: start: 2004
  3. ILETIN I [Suspect]
     Active Substance: INSULIN PORK\INSULIN PURIFIED PORK
     Indication: TYPE 1 DIABETES MELLITUS
  4. HUMALOG [Suspect]
     Active Substance: INSULIN LISPRO
     Indication: TYPE 1 DIABETES MELLITUS
     Dosage: 10 U, EACH MORNING
     Dates: start: 2004
  5. HUMALOG [Suspect]
     Active Substance: INSULIN LISPRO
     Indication: TYPE 1 DIABETES MELLITUS
     Dosage: 10 U, EACH MORNING
     Dates: start: 2004
  6. HUMALOG [Suspect]
     Active Substance: INSULIN LISPRO
     Dosage: 10 U, EACH MORNING
     Dates: start: 2004
  7. HUMALOG [Suspect]
     Active Substance: INSULIN LISPRO
     Dosage: 3 TO 5 U, WITH DINNER
     Dates: start: 2004
  8. HUMULIN N [Suspect]
     Active Substance: INSULIN HUMAN
     Indication: TYPE 1 DIABETES MELLITUS
     Dosage: 29 U, UNKNOWN
  9. HUMULIN N [Suspect]
     Active Substance: INSULIN HUMAN
     Indication: TYPE 1 DIABETES MELLITUS
     Dosage: 29 U, UNKNOWN
  10. HUMALOG [Suspect]
     Active Substance: INSULIN LISPRO
     Dosage: 3 TO 5 U, WITH DINNER
     Dates: start: 2004
  11. HUMULIN N [Suspect]
     Active Substance: INSULIN HUMAN
     Dosage: 3 U, AT NIGHT
  12. HUMALOG [Suspect]
     Active Substance: INSULIN LISPRO
     Dosage: 3 TO 5 U, WITH DINNER
     Dates: start: 2004
  13. ILETIN I [Suspect]
     Active Substance: INSULIN PORK\INSULIN PURIFIED PORK
     Indication: TYPE 1 DIABETES MELLITUS
  14. HUMULIN N [Suspect]
     Active Substance: INSULIN HUMAN
     Dosage: 3 U, AT NIGHT

REACTIONS (3)
  - Exposure via father [Recovered/Resolved]
  - Drug ineffective [Recovered/Resolved]
  - Blood glucose increased [Recovered/Resolved]
